FAERS Safety Report 10489677 (Version 1)
Quarter: 2014Q4

REPORT INFORMATION
  Report Type: Report from Study
  Country: DE (occurrence: DE)
  Receive Date: 20141002
  Receipt Date: 20141002
  Transmission Date: 20150528
  Serious: Yes (Other)
  Sender: FDA-Public Use
  Company Number: DE-AMGEN-DEUSL2014074654

PATIENT
  Sex: Male

DRUGS (1)
  1. PROLIA [Suspect]
     Active Substance: DENOSUMAB
     Indication: OSTEOPOROSIS
     Route: 065

REACTIONS (17)
  - Chronic obstructive pulmonary disease [Unknown]
  - Surgery [Unknown]
  - Activities of daily living impaired [Unknown]
  - Spinal deformity [Unknown]
  - Hyperlipidaemia [Unknown]
  - Mobility decreased [Unknown]
  - Back pain [Unknown]
  - Hip fracture [Unknown]
  - Parkinson^s disease [Unknown]
  - Prostate cancer [Unknown]
  - Myocardial infarction [Unknown]
  - Liver disorder [Unknown]
  - Spinal fracture [Unknown]
  - Body height decreased [Unknown]
  - Urinary incontinence [Unknown]
  - Asthenia [Unknown]
  - Decreased activity [Unknown]
